FAERS Safety Report 9127897 (Version 1)
Quarter: 2013Q1

REPORT INFORMATION
  Report Type: Spontaneous
  Country: US (occurrence: US)
  Receive Date: 20130122
  Receipt Date: 20130122
  Transmission Date: 20140127
  Serious: Yes (Other)
  Sender: FDA-Public Use
  Company Number: US-JNJFOC-20130111663

PATIENT
  Sex: Male

DRUGS (3)
  1. FENTANYL [Suspect]
     Indication: TRIGEMINAL NEURALGIA
     Route: 062
  2. OXYCODONE [Suspect]
     Indication: TRIGEMINAL NEURALGIA
     Route: 065
  3. MORPHINE [Suspect]
     Indication: TRIGEMINAL NEURALGIA
     Route: 048

REACTIONS (1)
  - Sleep apnoea syndrome [Recovering/Resolving]
